FAERS Safety Report 4965436-9 (Version None)
Quarter: 2006Q2

REPORT INFORMATION
  Report Type: 
  Country: None (occurrence: None)
  Receive Date: 20060406
  Receipt Date: 20050930
  Transmission Date: 20061013
  Serious: Yes (Hospitalization)
  Sender: FDA-Public Use
  Company Number: US-MERCK-0510USA01413

PATIENT
  Age: 21 Year
  Sex: Male
  Weight: 95 kg

DRUGS (1)
  1. VIOXX [Suspect]
     Indication: PAIN
     Route: 048
     Dates: start: 20040101, end: 20040101

REACTIONS (16)
  - ABDOMINAL PAIN [None]
  - ASTHMA [None]
  - BACK INJURY [None]
  - BACK PAIN [None]
  - CARDIAC DISORDER [None]
  - CARDIOVASCULAR DISORDER [None]
  - CEREBROVASCULAR ACCIDENT [None]
  - CHEST PAIN [None]
  - DYSPNOEA [None]
  - HAEMORRHAGE [None]
  - MYOCARDIAL INFARCTION [None]
  - NECK INJURY [None]
  - POST-TRAUMATIC HEADACHE [None]
  - PULMONARY EMBOLISM [None]
  - ROAD TRAFFIC ACCIDENT [None]
  - THROAT IRRITATION [None]
